FAERS Safety Report 13445368 (Version 1)
Quarter: 2017Q2

REPORT INFORMATION
  Report Type: Other
  Country: GB (occurrence: US)
  Receive Date: 20170414
  Receipt Date: 20170414
  Transmission Date: 20170830
  Serious: Yes (Death, Life-Threatening, Hospitalization, Other)
  Sender: FDA-Public Use
  Company Number: US-INTERNATIONAL MEDICATION SYSTEMS, LIMITED-1065401

PATIENT
  Age: 13 Month
  Sex: Female

DRUGS (1)
  1. LIDOCAINE VISCOUS [Suspect]
     Active Substance: LIDOCAINE HYDROCHLORIDE
     Indication: TEETHING
     Route: 048

REACTIONS (6)
  - Drug administration error [Fatal]
  - Overdose [Fatal]
  - Generalised tonic-clonic seizure [Unknown]
  - Death [Fatal]
  - Toxicity to various agents [Fatal]
  - Cardiac arrest [Fatal]
